FAERS Safety Report 9460332 (Version 2)
Quarter: 2013Q3

REPORT INFORMATION
  Report Type: Spontaneous
  Country: US (occurrence: None)
  Receive Date: 20130807
  Receipt Date: 20130807
  Transmission Date: 20140515
  Serious: Yes (Other)
  Sender: FDA-Public Use
  Company Number: AUR-APL-2013-04291

PATIENT
  Age: 66 Year
  Sex: Female

DRUGS (16)
  1. ATENOLOL (ATENOLOL) [Suspect]
     Indication: HYPERTENSION
     Dosage: 1 D
     Route: 048
     Dates: start: 2006
  2. ARIMIDEX (ANASTROZOLE) [Suspect]
     Indication: BREAST CANCER
     Dosage: 1 D
     Route: 048
     Dates: start: 20100501
  3. OMEPRAZOLE (OMEPRAZOLE) [Suspect]
     Route: 048
     Dates: start: 201207
  4. LANTUS [Concomitant]
  5. NOVOLOG [Concomitant]
  6. PLAVIX [Concomitant]
  7. ASPIRINE [Concomitant]
  8. ISOSORBIDE MONONITRATE [Concomitant]
  9. LEVOXYL [Concomitant]
  10. CLOBEX [Concomitant]
  11. LOVASTATIN [Concomitant]
  12. METORMIN [Concomitant]
  13. BENICAR [Concomitant]
  14. ALPRAZOLAM [Concomitant]
  15. RANITIDINE [Concomitant]
  16. TRIAMCINOLONE ACETONIDE [Concomitant]

REACTIONS (9)
  - Barrett^s oesophagus [None]
  - Vitamin D decreased [None]
  - Lacrimation increased [None]
  - Dry eye [None]
  - Rash [None]
  - Pruritus [None]
  - Pain [None]
  - Arthropod bite [None]
  - Erythema annulare [None]
